FAERS Safety Report 20639548 (Version 3)
Quarter: 2023Q4

REPORT INFORMATION
  Report Type: Spontaneous
  Country: US (occurrence: US)
  Receive Date: 20220326
  Receipt Date: 20231214
  Transmission Date: 20240110
  Serious: No
  Sender: FDA-Public Use
  Company Number: US-SA-SAC20220317000063

PATIENT
  Age: 54 Year
  Sex: Male

DRUGS (1)
  1. DUPIXENT [Suspect]
     Active Substance: DUPILUMAB
     Indication: Dermatitis atopic
     Dosage: 300 MG, QOW
     Route: 058
     Dates: start: 20211202

REACTIONS (5)
  - Injection site rash [Unknown]
  - Erythema [Unknown]
  - Injection site erythema [Unknown]
  - Injection site pruritus [Unknown]
  - Conjunctivitis [Unknown]
